FAERS Safety Report 25132709 (Version 1)
Quarter: 2025Q1

REPORT INFORMATION
  Report Type: Report from Study
  Country: US (occurrence: US)
  Receive Date: 20250328
  Receipt Date: 20250328
  Transmission Date: 20250409
  Serious: Yes (Hospitalization)
  Sender: ABBVIE
  Company Number: US-ABBVIE-6154460

PATIENT
  Age: 60 Year
  Sex: Male
  Weight: 83 kg

DRUGS (8)
  1. VYALEV [Suspect]
     Active Substance: FOSCARBIDOPA\FOSLEVODOPA
     Indication: Parkinson^s disease
     Route: 058
     Dates: start: 20250113
  2. VYALEV [Suspect]
     Active Substance: FOSCARBIDOPA\FOSLEVODOPA
     Route: 058
  3. ESCITALOPRAM [Concomitant]
     Active Substance: ESCITALOPRAM OXALATE
     Indication: Anxiety
     Route: 048
  4. TADALAFIL [Concomitant]
     Active Substance: TADALAFIL
     Indication: Product used for unknown indication
     Dosage: ONCE
     Route: 048
  5. ATORVASTATIN [Concomitant]
     Active Substance: ATORVASTATIN
     Indication: Product used for unknown indication
     Route: 048
  6. VITAMIN B12 [Concomitant]
     Active Substance: CYANOCOBALAMIN
     Indication: Product used for unknown indication
     Route: 048
  7. VITAMIN D [Concomitant]
     Active Substance: VITAMIN D NOS
     Indication: Product used for unknown indication
     Route: 048
  8. VITAMIN C [Concomitant]
     Active Substance: ASCORBIC ACID
     Indication: Product used for unknown indication
     Route: 048

REACTIONS (10)
  - Injection site cellulitis [Recovering/Resolving]
  - Injection site erythema [Recovering/Resolving]
  - Injection site pustule [Recovering/Resolving]
  - Injection site induration [Recovered/Resolved]
  - Injection site warmth [Recovering/Resolving]
  - Infusion site infection [Not Recovered/Not Resolved]
  - Device dislocation [Unknown]
  - Injection site pain [Not Recovered/Not Resolved]
  - Injection site warmth [Recovered/Resolved]
  - Injection site induration [Recovering/Resolving]

NARRATIVE: CASE EVENT DATE: 20250101
